FAERS Safety Report 14462777 (Version 2)
Quarter: 2018Q1

REPORT INFORMATION
  Report Type: Other
  Country: US (occurrence: US)
  Receive Date: 20180130
  Receipt Date: 20180213
  Transmission Date: 20180509
  Serious: Yes (Other)
  Sender: FDA-Public Use
  Company Number: US-ACORDA-ACO_145453_2017

PATIENT
  Sex: Female

DRUGS (9)
  1. AMPYRA [Suspect]
     Active Substance: DALFAMPRIDINE
     Indication: PRODUCT USED FOR UNKNOWN INDICATION
     Dosage: 10 MG, Q 12 HRS
     Route: 048
     Dates: start: 20170919
  2. OXYCODONE AND ACETAMINOPHEN [Concomitant]
     Active Substance: ACETAMINOPHEN\OXYCODONE HYDROCHLORIDE
     Indication: PRODUCT USED FOR UNKNOWN INDICATION
     Dosage: 10 MG-325 MG, QID PRN
     Route: 048
  3. TOPIRAMATE. [Concomitant]
     Active Substance: TOPIRAMATE
     Indication: PRODUCT USED FOR UNKNOWN INDICATION
     Dosage: 100 MG, BID
     Route: 048
  4. METHOCARBAMOL. [Concomitant]
     Active Substance: METHOCARBAMOL
     Indication: PRODUCT USED FOR UNKNOWN INDICATION
     Dosage: 750 MG, BID PRN
     Route: 048
  5. REMERON [Concomitant]
     Active Substance: MIRTAZAPINE
     Indication: PRODUCT USED FOR UNKNOWN INDICATION
     Dosage: 15 MG, HS
     Route: 048
  6. ABILIFY [Concomitant]
     Active Substance: ARIPIPRAZOLE
     Indication: PRODUCT USED FOR UNKNOWN INDICATION
     Dosage: 10 MG, QD
     Route: 048
  7. ALPRAZOLAM. [Concomitant]
     Active Substance: ALPRAZOLAM
     Indication: PRODUCT USED FOR UNKNOWN INDICATION
     Dosage: 0.5 MG, PRN
     Route: 048
  8. LACTULOSE. [Concomitant]
     Active Substance: LACTULOSE
     Indication: PRODUCT USED FOR UNKNOWN INDICATION
     Dosage: 10 G/15 ML
     Route: 048
  9. LEXAPRO [Concomitant]
     Active Substance: ESCITALOPRAM OXALATE
     Indication: PRODUCT USED FOR UNKNOWN INDICATION
     Dosage: 10 MG, QAM
     Route: 048

REACTIONS (26)
  - Chest pain [Not Recovered/Not Resolved]
  - Sleep apnoea syndrome [Unknown]
  - Ophthalmoplegia [Not Recovered/Not Resolved]
  - Dysuria [Unknown]
  - Blood pressure increased [Unknown]
  - Myelopathy [Unknown]
  - Neurogenic bladder [Unknown]
  - Balance disorder [Unknown]
  - Optic neuropathy [Not Recovered/Not Resolved]
  - Muscle spasticity [Unknown]
  - Muscle spasms [Not Recovered/Not Resolved]
  - Bladder dysfunction [Not Recovered/Not Resolved]
  - Oropharyngeal pain [Unknown]
  - Headache [Not Recovered/Not Resolved]
  - Neck pain [Not Recovered/Not Resolved]
  - Pain in extremity [Not Recovered/Not Resolved]
  - Seizure [Unknown]
  - Dysphagia [Unknown]
  - Abdominal discomfort [Not Recovered/Not Resolved]
  - Multiple sclerosis relapse [Unknown]
  - Back pain [Unknown]
  - Condition aggravated [None]
  - Muscular weakness [Unknown]
  - Gait disturbance [Unknown]
  - Abdominal pain [Not Recovered/Not Resolved]
  - Bipolar I disorder [Not Recovered/Not Resolved]
